FAERS Safety Report 18387243 (Version 1)
Quarter: 2020Q4

REPORT INFORMATION
  Report Type: Spontaneous
  Country: DE (occurrence: DE)
  Receive Date: 20201015
  Receipt Date: 20201015
  Transmission Date: 20210114
  Serious: Yes (Other)
  Sender: FDA-Public Use
  Company Number: DE-GALDERMA-DE2020044890

PATIENT
  Age: 30 Year
  Sex: Male
  Weight: 81 kg

DRUGS (1)
  1. ORAYCEA [Suspect]
     Active Substance: DOXYCYCLINE
     Indication: ROSACEA
     Dosage: 40 MG, HARD CAPSULES WITH ALTERED RELEASE OF ACTIVE INGREDIENT
     Route: 048
     Dates: start: 20200715, end: 20200907

REACTIONS (2)
  - Penile discomfort [Recovering/Resolving]
  - Erectile dysfunction [Recovering/Resolving]

NARRATIVE: CASE EVENT DATE: 20200801
